FAERS Safety Report 8587639-7 (Version None)
Quarter: 2012Q3

REPORT INFORMATION
  Report Type: 
  Country: None (occurrence: None)
  Receive Date: 20120811
  Receipt Date: 20120731
  Transmission Date: 20120928
  Serious: No
  Sender: FDA-Public Use
  Company Number: US-ASTRAZENECA-2012SE54140

PATIENT
  Age: 69 Year
  Sex: Female

DRUGS (2)
  1. NEXIUM [Suspect]
     Route: 048
  2. PRILOSEC [Concomitant]

REACTIONS (12)
  - VOMITING [None]
  - CONSTIPATION [None]
  - HEARING IMPAIRED [None]
  - DIARRHOEA [None]
  - DRY MOUTH [None]
  - FLATULENCE [None]
  - ABDOMINAL DISCOMFORT [None]
  - ABDOMINAL PAIN [None]
  - BOWEL MOVEMENT IRREGULARITY [None]
  - HEADACHE [None]
  - NAUSEA [None]
  - ADVERSE EVENT [None]
